FAERS Safety Report 4477745-0 (Version None)
Quarter: 2004Q3

REPORT INFORMATION
  Report Type: 
  Country: None (occurrence: None)
  Receive Date: 20040923
  Receipt Date: 20040615
  Transmission Date: 20050211
  Serious: No
  Sender: FDA-Public Use
  Company Number: USA040670219

PATIENT
  Age: 70 Year
  Sex: Female

DRUGS (6)
  1. FORTEO [Suspect]
     Indication: OSTEOPOROSIS
     Dates: start: 20040401
  2. EVISTA [Suspect]
     Indication: OSTEOPOROSIS
     Dates: start: 20030601
  3. VIOXX [Concomitant]
  4. POTASSIUM [Concomitant]
  5. CALCIUM [Concomitant]
  6. PREDNISONE [Concomitant]

REACTIONS (3)
  - ARTHRALGIA [None]
  - INSOMNIA [None]
  - SCIATICA [None]
